FAERS Safety Report 8250385-3 (Version None)
Quarter: 2012Q1

REPORT INFORMATION
  Report Type: 
  Country: None (occurrence: None)
  Receive Date: 20120328
  Receipt Date: 20120313
  Transmission Date: 20120608
  Serious: Yes (Life-Threatening)
  Sender: FDA-Public Use
  Company Number: 2012FR0098

PATIENT
  Age: 76 Year
  Sex: Male

DRUGS (2)
  1. ANAKINRA (ANAKINRA) [Suspect]
     Indication: JUVENILE ARTHRITIS
     Dosage: 100 MG (100 MG, 1 IN 1 D)
     Route: 058
     Dates: start: 20081101, end: 20120119
  2. PREDNISONE TAB [Suspect]
     Indication: JUVENILE ARTHRITIS
     Dosage: ORAL
     Route: 048
     Dates: start: 20080101

REACTIONS (4)
  - KLEBSIELLA SEPSIS [None]
  - MALNUTRITION [None]
  - MULTI-ORGAN FAILURE [None]
  - NEUROPATHY PERIPHERAL [None]
